FAERS Safety Report 10153645 (Version 1)
Quarter: 2014Q2

REPORT INFORMATION
  Report Type: Report from Study
  Country: US (occurrence: US)
  Receive Date: 20140505
  Receipt Date: 20140505
  Transmission Date: 20141212
  Serious: Yes (Death)
  Sender: FDA-Public Use
  Company Number: PHHO2006US022614

PATIENT
  Age: 96 Year
  Sex: Male
  Weight: 85 kg

DRUGS (1)
  1. GLEEVEC [Suspect]
     Dosage: 400 MG, QD
     Dates: start: 20010109, end: 20050714

REACTIONS (1)
  - Colon cancer [Fatal]
